FAERS Safety Report 5663186-7 (Version None)
Quarter: 2008Q1

REPORT INFORMATION
  Report Type: 
  Country: None (occurrence: None)
  Receive Date: 20080313
  Receipt Date: 20080303
  Transmission Date: 20080703
  Serious: Yes (Other)
  Sender: FDA-Public Use
  Company Number: US-PFIZER INC-2008006452

PATIENT
  Sex: Male
  Weight: 75 kg

DRUGS (2)
  1. LIPITOR [Suspect]
     Indication: BLOOD CHOLESTEROL INCREASED
     Route: 048
  2. DRUG, UNSPECIFIED [Concomitant]

REACTIONS (6)
  - BALANCE DISORDER [None]
  - CAROTID ARTERY STENOSIS [None]
  - LUNG NEOPLASM MALIGNANT [None]
  - MUSCLE DISORDER [None]
  - MYALGIA [None]
  - PROSTATE CANCER [None]
